FAERS Safety Report 22306414 (Version 1)
Quarter: 2023Q2

REPORT INFORMATION
  Report Type: Report from Study
  Country: US (occurrence: US)
  Receive Date: 20230511
  Receipt Date: 20230511
  Transmission Date: 20230721
  Serious: No
  Sender: FDA-Public Use
  Company Number: US-002147023-NVSC2023US103687

PATIENT
  Sex: Female
  Weight: 106.6 kg

DRUGS (4)
  1. TAZAROTENE [Suspect]
     Active Substance: TAZAROTENE
     Indication: Psoriasis
     Route: 065
  2. CLOBETASOL [Suspect]
     Active Substance: CLOBETASOL
     Indication: Psoriasis
     Dosage: CREAM
     Route: 065
  3. CLOBETASOL [Suspect]
     Active Substance: CLOBETASOL
     Dosage: SOLUTION
     Route: 065
  4. CALCIPOTRIENE [Suspect]
     Active Substance: CALCIPOTRIENE
     Indication: Psoriasis
     Route: 065

REACTIONS (1)
  - Drug ineffective [Unknown]
